FAERS Safety Report 5680724-9 (Version None)
Quarter: 2008Q1

REPORT INFORMATION
  Report Type: 
  Country: None (occurrence: None)
  Receive Date: 20080326
  Receipt Date: 20080303
  Transmission Date: 20080703
  Serious: No
  Sender: FDA-Public Use
  Company Number: US-BOEHRINGER INGELHEIM GMBH, GERMANY-2008-BP-03230BP

PATIENT
  Sex: Female

DRUGS (5)
  1. CATAPRES-TTS-1 [Suspect]
     Indication: HYPERTENSION
     Route: 061
     Dates: start: 20071201
  2. PREMARIN [Concomitant]
  3. VYTORIN [Concomitant]
  4. DYNACIRC [Concomitant]
     Indication: HYPERTENSION
  5. MICARDIS [Concomitant]

REACTIONS (1)
  - APPLICATION SITE DISCOLOURATION [None]
